FAERS Safety Report 12624257 (Version 2)
Quarter: 2021Q2

REPORT INFORMATION
  Report Type: Report from Study
  Country: US (occurrence: US)
  Receive Date: 20160805
  Receipt Date: 20210427
  Transmission Date: 20210716
  Serious: Yes (Hospitalization, Other)
  Sender: FDA-Public Use
  Company Number: US-ROCHE-1804559

PATIENT
  Age: 54 Year
  Sex: Female

DRUGS (10)
  1. PERTUZUMAB. [Suspect]
     Active Substance: PERTUZUMAB
     Indication: BREAST CANCER METASTATIC
     Route: 042
     Dates: start: 20150918
  2. TRASTUZUMAB. [Suspect]
     Active Substance: TRASTUZUMAB
     Indication: BREAST CANCER METASTATIC
     Dosage: DOSE: 6MG/KG
     Route: 042
     Dates: start: 20150918
  3. GEMCITABINE. [Suspect]
     Active Substance: GEMCITABINE
     Indication: BREAST CANCER METASTATIC
     Dosage: FREQUENCY: 2 WEEKS ON AND 1 WEEKS OFF.
     Route: 042
     Dates: start: 20150918
  4. CEFTRIAXONE. [Concomitant]
     Active Substance: CEFTRIAXONE
  5. PREDNISONE. [Concomitant]
     Active Substance: PREDNISONE
     Dosage: TAPER
     Dates: start: 20151208, end: 20151223
  6. GEMCITABINE. [Suspect]
     Active Substance: GEMCITABINE
     Dosage: FREQUENCY: 2 WEEKS ON AND 1 WEEKS OFF.
     Route: 042
     Dates: start: 20151228
  7. AZITHROMYCIN ANHYDROUS. [Concomitant]
     Active Substance: AZITHROMYCIN ANHYDROUS
  8. PERTUZUMAB. [Suspect]
     Active Substance: PERTUZUMAB
     Route: 042
     Dates: start: 20151228
  9. LOVENOX [Concomitant]
     Active Substance: ENOXAPARIN SODIUM
  10. TRASTUZUMAB. [Suspect]
     Active Substance: TRASTUZUMAB
     Dosage: DOSE: 6MG/KG
     Route: 042
     Dates: start: 20151228

REACTIONS (5)
  - Pneumonia [Recovered/Resolved]
  - Pleural effusion [Unknown]
  - Deep vein thrombosis [Unknown]
  - Dyspnoea [Recovered/Resolved]
  - Pulmonary oedema [Unknown]

NARRATIVE: CASE EVENT DATE: 20151201
